FAERS Safety Report 5793105-4 (Version None)
Quarter: 2008Q2

REPORT INFORMATION
  Report Type: 
  Country: None (occurrence: None)
  Receive Date: 20080626
  Receipt Date: 20080626
  Transmission Date: 20081010
  Serious: No
  Sender: FDA-Public Use
  Company Number: None

PATIENT
  Age: 61 Year
  Sex: Male
  Weight: 88 kg

DRUGS (2)
  1. CIPROFLOXACIN [Suspect]
     Indication: PROSTATITIS
     Dosage: 500 MG BID OTHER
     Route: 050
     Dates: start: 20080530, end: 20080616
  2. SIMVASTATIN [Suspect]
     Indication: HYPERLIPIDAEMIA
     Dosage: 40
     Dates: start: 20080527, end: 20080616

REACTIONS (3)
  - CONTUSION [None]
  - PETECHIAE [None]
  - THROMBOCYTOPENIA [None]
